FAERS Safety Report 7208258-0 (Version None)
Quarter: 2011Q1

REPORT INFORMATION
  Report Type: 
  Country: None (occurrence: None)
  Receive Date: 20110104
  Receipt Date: 20101227
  Transmission Date: 20110831
  Serious: Yes (Hospitalization)
  Sender: FDA-Public Use
  Company Number: US-JNJFOC-20101209030

PATIENT
  Sex: Male
  Weight: 114.2 kg

DRUGS (4)
  1. INFLIXIMAB, RECOMBINANT [Suspect]
     Indication: CROHN'S DISEASE
     Route: 042
  2. FEOSOL [Suspect]
  3. FEOSOL [Suspect]
     Indication: ILL-DEFINED DISORDER
  4. MULTIPLE VITAMIN [Concomitant]

REACTIONS (1)
  - SMALL INTESTINAL OBSTRUCTION [None]
